FAERS Safety Report 4426899-0 (Version None)
Quarter: 2004Q3

REPORT INFORMATION
  Report Type: 
  Country: None (occurrence: None)
  Receive Date: 20040811
  Receipt Date: 20040726
  Transmission Date: 20050211
  Serious: Yes (Hospitalization)
  Sender: FDA-Public Use
  Company Number: 2004-UK-00494UK

PATIENT
  Age: 26 Year
  Sex: Female

DRUGS (5)
  1. NEVIRAPINE (EU/1/97/055/001) (NEVIRAPINE) [Suspect]
     Indication: RETROVIRAL INFECTION
     Dosage: 200 MG PO
     Route: 048
     Dates: start: 20040105
  2. COMBIVIR [Concomitant]
  3. AZITHROMYCIN [Concomitant]
  4. COTRIMOXAZOLE [Concomitant]
  5. CLARITHROMYCIN [Concomitant]

REACTIONS (18)
  - ABDOMINAL PAIN UPPER [None]
  - ANOREXIA [None]
  - BACK PAIN [None]
  - CD4 LYMPHOCYTES DECREASED [None]
  - CHILLS [None]
  - CONSTIPATION [None]
  - FACE OEDEMA [None]
  - HEADACHE [None]
  - HEPATITIS [None]
  - LETHARGY [None]
  - MALAISE [None]
  - NAUSEA [None]
  - PAIN [None]
  - PAIN IN EXTREMITY [None]
  - PARAESTHESIA [None]
  - PRURITUS [None]
  - PYREXIA [None]
  - RASH [None]
